FAERS Safety Report 11074103 (Version 1)
Quarter: 2015Q2

REPORT INFORMATION
  Report Type: Spontaneous
  Country: US (occurrence: None)
  Receive Date: 20150428
  Receipt Date: 20150428
  Transmission Date: 20150821
  Serious: Yes (Death)
  Sender: FDA-Public Use
  Company Number: None

PATIENT
  Age: 22 Year
  Sex: Female
  Weight: 58.97 kg

DRUGS (4)
  1. MUSCULOSKELETAL + BUPIVICAINE COMPOUND [Suspect]
     Active Substance: BUPIVACAINE
     Dosage: APPLIED TO A SURFACE USUALLY THE SKIN
     Route: 061
  2. CYCLOBENZAPRINE COMPOUND [Suspect]
     Active Substance: CYCLOBENZAPRINE
  3. COMBINATION CREAM [Suspect]
     Active Substance: UNSPECIFIED INGREDIENT
  4. KETAMINE COMPOUND [Suspect]
     Active Substance: KETAMINE

REACTIONS (2)
  - Feeling abnormal [None]
  - Toxicity to various agents [None]
